FAERS Safety Report 7164225-7 (Version None)
Quarter: 2010Q4

REPORT INFORMATION
  Report Type: 
  Country: None (occurrence: None)
  Receive Date: 20101215
  Receipt Date: 20101210
  Transmission Date: 20110411
  Serious: Yes (Hospitalization, Other)
  Sender: FDA-Public Use
  Company Number: AU-AMGEN-AUSSP2010007116

PATIENT

DRUGS (2)
  1. NPLATE [Suspect]
     Indication: PRODUCT USED FOR UNKNOWN INDICATION
     Dosage: 2 A?G/KG, Q2WK
     Dates: start: 20100101
  2. NPLATE [Suspect]
     Dosage: 600 A?G, ONE TIME DOSE
     Dates: start: 20101119, end: 20101119

REACTIONS (4)
  - MEDICATION ERROR [None]
  - PLATELET COUNT INCREASED [None]
  - THROMBOTIC STROKE [None]
  - VAGINAL HAEMORRHAGE [None]
